FAERS Safety Report 20601299 (Version 1)
Quarter: 2022Q1

REPORT INFORMATION
  Report Type: Report from Study
  Country: US (occurrence: US)
  Receive Date: 20220316
  Receipt Date: 20220316
  Transmission Date: 20220423
  Serious: Yes (Other)
  Sender: FDA-Public Use
  Company Number: US-MYLANLABS-2022M1019384

PATIENT
  Sex: Female
  Weight: 102.06 kg

DRUGS (3)
  1. POTASSIUM CHLORIDE [Suspect]
     Active Substance: POTASSIUM CHLORIDE
     Indication: Cardiac failure congestive
     Dosage: 10 MILLIEQUIVALENT, BID
     Dates: start: 201406
  2. ENTRESTO [Suspect]
     Active Substance: SACUBITRIL\VALSARTAN
     Indication: Product used for unknown indication
     Dosage: 97/103 MG TWICE A DAY))
     Dates: start: 2015
  3. CARVEDILOL [Suspect]
     Active Substance: CARVEDILOL
     Indication: Product used for unknown indication
     Dosage: 25 MILLIGRAM

REACTIONS (14)
  - Ascites [Unknown]
  - Fluid retention [Unknown]
  - Weight decreased [Unknown]
  - Dehydration [Unknown]
  - Visual impairment [Unknown]
  - Product dose omission issue [Unknown]
  - Fatigue [Unknown]
  - Inappropriate schedule of product administration [Unknown]
  - Asthenia [Unknown]
  - Pain [Unknown]
  - Hypertension [Unknown]
  - Dizziness [Unknown]
  - Gait inability [Unknown]
  - Headache [Unknown]

NARRATIVE: CASE EVENT DATE: 20210101
